FAERS Safety Report 18202402 (Version 1)
Quarter: 2020Q3

REPORT INFORMATION
  Report Type: Spontaneous
  Country: US (occurrence: US)
  Receive Date: 20200827
  Receipt Date: 20200827
  Transmission Date: 20201103
  Serious: No
  Sender: FDA-Public Use
  Company Number: None

PATIENT
  Age: 84 Year
  Sex: Female
  Weight: 54.43 kg

DRUGS (3)
  1. TRAMETERENE [Concomitant]
  2. PEROXIE CARE TARTAR CONTROL HEALTHY GUMS BAKING SODA AND PEROXIDE [Suspect]
     Active Substance: SODIUM FLUORIDE
     Indication: DENTAL CARE
     Dosage: ?          QUANTITY:2 DF DOSAGE FORM;?
     Dates: start: 20200128, end: 20200215
  3. ONE A DAY WOMEN^S VITAMIN 50+ [Concomitant]

REACTIONS (4)
  - Aphthous ulcer [None]
  - Erythema [None]
  - Gingival swelling [None]
  - Noninfective gingivitis [None]

NARRATIVE: CASE EVENT DATE: 20200210
